FAERS Safety Report 5731178-5 (Version None)
Quarter: 2008Q2

REPORT INFORMATION
  Report Type: 
  Country: None (occurrence: None)
  Receive Date: 20080507
  Receipt Date: 20080414
  Transmission Date: 20081010
  Serious: No
  Sender: FDA-Public Use
  Company Number: US-BOEHRINGER INGELHEIM GMBH, GERMANY-2008-BP-01248BP

PATIENT
  Sex: Female

DRUGS (8)
  1. CATAPRES-TTS-1 [Suspect]
     Indication: ARTHRITIS
     Route: 061
     Dates: start: 20051101
  2. CATAPRES-TTS-1 [Suspect]
     Indication: ESSENTIAL HYPERTENSION
  3. POTASSIUM CHLORIDE [Concomitant]
  4. SULAR CR [Concomitant]
     Indication: HYPERTENSION
  5. NEXIUM [Concomitant]
  6. LORAZEPAM [Concomitant]
  7. METOPR-ER [Concomitant]
  8. DILTIAZEM HCL [Concomitant]

REACTIONS (2)
  - BACK PAIN [None]
  - HYPERTENSION [None]
